FAERS Safety Report 18318697 (Version 1)
Quarter: 2020Q3

REPORT INFORMATION
  Report Type: Report from Study
  Country: US (occurrence: US)
  Receive Date: 20200928
  Receipt Date: 20200928
  Transmission Date: 20201103
  Serious: Yes (Hospitalization, Other)
  Sender: FDA-Public Use
  Company Number: US-B.I. PHARMACEUTICALS,INC./RIDGEFIELD-2020-MR-040387

PATIENT
  Age: 49 Year
  Sex: Female

DRUGS (1)
  1. JARDIANCE [Suspect]
     Active Substance: EMPAGLIFLOZIN
     Indication: HYPERSENSITIVITY
     Dosage: ONCE DAILY
     Route: 048
     Dates: start: 201607, end: 202007

REACTIONS (4)
  - Pyrexia [Unknown]
  - Euglycaemic diabetic ketoacidosis [Unknown]
  - Hypersensitivity [Recovered/Resolved]
  - Viral infection [Unknown]

NARRATIVE: CASE EVENT DATE: 202007
